FAERS Safety Report 6382238-X (Version None)
Quarter: 2009Q3

REPORT INFORMATION
  Report Type: 
  Country: None (occurrence: None)
  Receive Date: 20090928
  Receipt Date: 20090928
  Transmission Date: 20100115
  Serious: No
  Sender: FDA-Public Use
  Company Number: None

PATIENT
  Age: 46 Year
  Sex: Male
  Weight: 109.7705 kg

DRUGS (2)
  1. RIBAVIRIN 200MG (REBETOL) [Suspect]
     Indication: HEPATITIS C
     Dosage: 800 IN AM 600 MG IN PM ORAL DAILY
     Route: 048
     Dates: start: 20090825, end: 20090904
  2. PEG INTRO INTERFERON (PEG) INTRA [Suspect]
     Dosage: 150 MCG WEEKLY S.C.
     Route: 058

REACTIONS (1)
  - HAEMOLYTIC ANAEMIA [None]
